FAERS Safety Report 5372512-8 (Version None)
Quarter: 2007Q2

REPORT INFORMATION
  Report Type: 
  Country: None (occurrence: None)
  Receive Date: 20070627
  Receipt Date: 20070615
  Transmission Date: 20071010
  Serious: Yes (Other)
  Sender: FDA-Public Use
  Company Number: NZ-BOEHRINGER INGELHEIM PHARMACEUTICALS, INC.-2007-DE-03609GD

PATIENT
  Age: 67 Year
  Sex: Male

DRUGS (2)
  1. PRAMIPEXOLE DIHYDROCHLORIDE [Suspect]
     Indication: PARKINSON'S DISEASE
     Route: 048
     Dates: start: 20041102, end: 20050317
  2. LEVODOPA [Suspect]
     Indication: PARKINSON'S DISEASE

REACTIONS (1)
  - BLADDER NEOPLASM [None]
